FAERS Safety Report 17515436 (Version 1)
Quarter: 2020Q1

REPORT INFORMATION
  Report Type: Spontaneous
  Country: NL (occurrence: NL)
  Receive Date: 20200309
  Receipt Date: 20200309
  Transmission Date: 20200409
  Serious: Yes (Disabling)
  Sender: FDA-Public Use
  Company Number: NL-SA-2020SA056902

PATIENT
  Sex: Male

DRUGS (1)
  1. DUPILUMAB [Suspect]
     Active Substance: DUPILUMAB
     Indication: ECZEMA
     Dosage: UNK
     Dates: start: 2018

REACTIONS (6)
  - Loss of personal independence in daily activities [Unknown]
  - Malaise [Unknown]
  - Chills [Unknown]
  - Influenza like illness [Unknown]
  - Pustule [Unknown]
  - Acne [Unknown]
